FAERS Safety Report 22245470 (Version 6)
Quarter: 2023Q2

REPORT INFORMATION
  Report Type: Report from Study
  Country: CN (occurrence: CN)
  Receive Date: 20230424
  Receipt Date: 20230623
  Transmission Date: 20230722
  Serious: Yes (Death, Hospitalization)
  Sender: FDA-Public Use
  Company Number: CN-002147023-NVSC2023CN086828

PATIENT
  Age: 66 Year
  Sex: Female
  Weight: 50 kg

DRUGS (21)
  1. PIQRAY [Suspect]
     Active Substance: ALPELISIB
     Indication: Ovarian cancer
     Dosage: 200 MG, QD (DAILY)
     Route: 048
     Dates: start: 20221222, end: 20230414
  2. OLAPARIB [Suspect]
     Active Substance: OLAPARIB
     Indication: Ovarian cancer
     Dosage: 400 MG, BID
     Route: 048
     Dates: start: 20221222, end: 20230414
  3. VITAMIN C [Concomitant]
     Active Substance: ASCORBIC ACID
     Indication: Anaemia
     Dosage: UNK
     Route: 065
     Dates: start: 20230311
  4. DEXAMETHASONE [Concomitant]
     Active Substance: DEXAMETHASONE
     Indication: Mouth ulceration
     Dosage: UNK
     Route: 065
     Dates: start: 20230325, end: 20230331
  5. OXYTETRACYCLINE [Concomitant]
     Active Substance: OXYTETRACYCLINE
     Indication: Mouth ulceration
     Dosage: UNK
     Route: 065
     Dates: start: 20230325, end: 20230331
  6. GLIQUIDONE [Concomitant]
     Active Substance: GLIQUIDONE
     Indication: Hyperglycaemia
     Dosage: UNK
     Route: 065
     Dates: start: 20230331, end: 20230405
  7. GLIQUIDONE [Concomitant]
     Active Substance: GLIQUIDONE
     Indication: Prophylaxis
     Dosage: UNK
     Route: 065
     Dates: start: 20230331, end: 20230409
  8. GLIQUIDONE [Concomitant]
     Active Substance: GLIQUIDONE
     Dosage: UNK
     Route: 065
     Dates: start: 20230410, end: 20230412
  9. GLIQUIDONE [Concomitant]
     Active Substance: GLIQUIDONE
     Dosage: UNK
     Route: 065
     Dates: start: 20230413
  10. METFORMIN [Concomitant]
     Active Substance: METFORMIN HYDROCHLORIDE
     Indication: Prophylaxis
     Dosage: UNK
     Route: 065
     Dates: start: 20230331, end: 20230405
  11. METFORMIN [Concomitant]
     Active Substance: METFORMIN HYDROCHLORIDE
     Indication: Hyperglycaemia
     Dosage: UNK
     Route: 065
     Dates: start: 20230331, end: 20230409
  12. METFORMIN [Concomitant]
     Active Substance: METFORMIN HYDROCHLORIDE
     Dosage: UNK
     Route: 065
     Dates: start: 20230410, end: 20230412
  13. METFORMIN [Concomitant]
     Active Substance: METFORMIN HYDROCHLORIDE
     Dosage: UNK
     Route: 065
     Dates: start: 20230413
  14. SILIBININ [Concomitant]
     Active Substance: SILIBININ
     Indication: Alanine aminotransferase increased
     Dosage: UNK
     Route: 065
     Dates: start: 20230331, end: 20230413
  15. SILIBININ [Concomitant]
     Active Substance: SILIBININ
     Indication: Prophylaxis
     Dosage: UNK
     Route: 065
     Dates: start: 20230410, end: 20230412
  16. IBUPROFEN [Concomitant]
     Active Substance: IBUPROFEN
     Indication: Arthralgia
     Dosage: UNK
     Route: 065
     Dates: start: 20230408, end: 20230408
  17. IBUPROFEN [Concomitant]
     Active Substance: IBUPROFEN
     Indication: Infection
     Dosage: UNK
     Route: 065
     Dates: start: 20230411, end: 20230411
  18. NIMESULIDE [Concomitant]
     Active Substance: NIMESULIDE
     Indication: Infection
     Dosage: UNK
     Route: 065
     Dates: start: 20230411, end: 20230411
  19. CEFIXIME [Concomitant]
     Active Substance: CEFIXIME
     Indication: Infection
     Dosage: UNK
     Route: 065
     Dates: start: 20230413
  20. GRANULOCYTE COLONY-STIMULATING FACTOR NOS [Concomitant]
     Active Substance: GRANULOCYTE COLONY-STIMULATING FACTOR NOS
     Indication: White blood cell count decreased
     Dosage: UNK
     Route: 065
     Dates: start: 20230413, end: 20230414
  21. THROMBOPOIETIN [Concomitant]
     Active Substance: THROMBOPOIETIN
     Indication: Platelet count decreased
     Dosage: UNK
     Route: 065
     Dates: start: 20230414, end: 20230414

REACTIONS (1)
  - Pneumonia [Fatal]

NARRATIVE: CASE EVENT DATE: 20230414
